FAERS Safety Report 21855560 (Version 2)
Quarter: 2023Q1

REPORT INFORMATION
  Report Type: Spontaneous
  Country: US (occurrence: US)
  Receive Date: 20230112
  Receipt Date: 20230210
  Transmission Date: 20230418
  Serious: No
  Sender: FDA-Public Use
  Company Number: US-AMGEN-USASP2023003887

PATIENT
  Age: 65 Year
  Sex: Female

DRUGS (9)
  1. OTEZLA [Suspect]
     Active Substance: APREMILAST
     Indication: Psoriasis
     Dosage: 30 MILLIGRAM, QD
     Route: 048
     Dates: start: 20210821
  2. OTEZLA [Suspect]
     Active Substance: APREMILAST
     Dosage: 30 MILLIGRAM, BID
     Route: 048
  3. ASPIRIN [Concomitant]
     Active Substance: ASPIRIN
     Dosage: 81 MILLIGRAM
  4. COENZYME Q10 [Concomitant]
     Active Substance: DIETARY SUPPLEMENT\UBIDECARENONE
     Dosage: 400 MILLIGRAM
  5. KRILL OIL [Concomitant]
     Active Substance: DIETARY SUPPLEMENT\KRILL OIL
     Dosage: 500 MILLIGRAM
  6. LOSARTAN POTASSIUM ACCORD [Concomitant]
     Dosage: 100 MILLIGRAM
  7. ROSUVASTATIN [Concomitant]
     Active Substance: ROSUVASTATIN
     Dosage: 5 MILLIGRAM
  8. TRAMADOL HCL [Concomitant]
     Active Substance: TRAMADOL HYDROCHLORIDE
     Dosage: 50 MILLIGRAM
  9. VITAMIN D [Concomitant]
     Active Substance: VITAMIN D NOS
     Dosage: 50 MILLIGRAM

REACTIONS (3)
  - Product dose omission issue [Not Recovered/Not Resolved]
  - Off label use [Unknown]
  - Nausea [Not Recovered/Not Resolved]

NARRATIVE: CASE EVENT DATE: 20210821
